FAERS Safety Report 22165885 (Version 2)
Quarter: 2023Q2

REPORT INFORMATION
  Report Type: Report from Study
  Country: BR (occurrence: BR)
  Receive Date: 20230403
  Receipt Date: 20230427
  Transmission Date: 20230721
  Serious: Yes (Hospitalization)
  Sender: FDA-Public Use
  Company Number: BR-NOVOPROD-983516

PATIENT
  Age: 39 Year
  Sex: Male
  Weight: 85 kg

DRUGS (6)
  1. FIASP [Suspect]
     Active Substance: INSULIN ASPART
     Indication: Type 1 diabetes mellitus
     Dosage: 3-4 IU
  2. FIASP [Suspect]
     Active Substance: INSULIN ASPART
     Dosage: 10 IU
  3. FIASP [Suspect]
     Active Substance: INSULIN ASPART
     Dosage: 7 IU (NEW PEN)
  4. FIASP [Suspect]
     Active Substance: INSULIN ASPART
     Dosage: 3-4 IU (NEW PEN)
  5. FIASP [Suspect]
     Active Substance: INSULIN ASPART
     Dosage: 7 IU
  6. INSULIN NOS [Concomitant]
     Active Substance: INSULIN NOS
     Indication: Type 1 diabetes mellitus
     Dosage: 18 IU

REACTIONS (7)
  - Hypoglycaemia [Recovered/Resolved]
  - Device delivery system issue [Unknown]
  - Device issue [Unknown]
  - Incorrect dose administered [Unknown]
  - Product storage error [Unknown]
  - Hyperglycaemia [Unknown]
  - Drug ineffective [Recovered/Resolved]

NARRATIVE: CASE EVENT DATE: 20221101
